FAERS Safety Report 8428510-0 (Version None)
Quarter: 2012Q2

REPORT INFORMATION
  Report Type: 
  Country: None (occurrence: None)
  Receive Date: 20120612
  Receipt Date: 20120604
  Transmission Date: 20120825
  Serious: No
  Sender: FDA-Public Use
  Company Number: US-PFIZER INC-2012136246

PATIENT
  Sex: Female

DRUGS (1)
  1. SUTENT [Suspect]
     Indication: THYROID CANCER METASTATIC
     Dosage: UNK

REACTIONS (2)
  - DISEASE PROGRESSION [None]
  - THYROID CANCER METASTATIC [None]
